FAERS Safety Report 13904437 (Version 1)
Quarter: 2017Q3

REPORT INFORMATION
  Report Type: Spontaneous
  Country: US (occurrence: US)
  Receive Date: 20170825
  Receipt Date: 20170825
  Transmission Date: 20171127
  Serious: Yes (Hospitalization)
  Sender: FDA-Public Use
  Company Number: US-TEVA-695626USA

PATIENT
  Age: 63 Year
  Sex: Male
  Weight: 87.17 kg

DRUGS (16)
  1. NORVASC [Concomitant]
     Active Substance: AMLODIPINE BESYLATE
     Route: 065
     Dates: start: 2000
  2. GLUCOPHAGE [Concomitant]
     Active Substance: METFORMIN HYDROCHLORIDE
     Dates: start: 2005
  3. GLIBENCLAMIDE [Suspect]
     Active Substance: GLYBURIDE
     Indication: DIABETES MELLITUS
     Dosage: 10 MILLIGRAM DAILY;
     Route: 048
     Dates: start: 2007, end: 20110819
  4. NEXIUM [Concomitant]
     Active Substance: ESOMEPRAZOLE MAGNESIUM
     Route: 065
     Dates: start: 20101221, end: 20110428
  5. DOXEPIN [Concomitant]
     Active Substance: DOXEPIN
     Route: 065
     Dates: start: 2006
  6. TRICOR [Concomitant]
     Active Substance: FENOFIBRATE
     Dates: start: 20110114
  7. NITROSTAT [Concomitant]
     Active Substance: NITROGLYCERIN
     Route: 065
     Dates: start: 2006
  8. LASIX [Concomitant]
     Active Substance: FUROSEMIDE
     Route: 065
     Dates: start: 2006
  9. NAPROXEN. [Concomitant]
     Active Substance: NAPROXEN
     Indication: OSTEOARTHRITIS
     Route: 048
     Dates: start: 20101221, end: 20110406
  10. ZESTRIL [Concomitant]
     Active Substance: LISINOPRIL
     Dates: start: 2006
  11. LAMICTAL [Concomitant]
     Active Substance: LAMOTRIGINE
     Dates: start: 2006
  12. METOPROLOL TARTRATE. [Concomitant]
     Active Substance: METOPROLOL TARTRATE
     Dates: start: 2005
  13. ASPIRIN. [Concomitant]
     Active Substance: ASPIRIN
     Dates: start: 2006
  14. ZOCOR [Concomitant]
     Active Substance: SIMVASTATIN
     Dates: start: 2006
  15. AMBIEN [Concomitant]
     Active Substance: ZOLPIDEM TARTRATE
     Dates: start: 2008
  16. HYDRODIURIL [Concomitant]
     Active Substance: HYDROCHLOROTHIAZIDE
     Dates: start: 20110114

REACTIONS (1)
  - Hypoglycaemia [Recovered/Resolved]

NARRATIVE: CASE EVENT DATE: 20110819
